FAERS Safety Report 10638600 (Version 6)
Quarter: 2015Q3

REPORT INFORMATION
  Report Type: Report from Study
  Country: GB (occurrence: GB)
  Receive Date: 20141208
  Receipt Date: 20150715
  Transmission Date: 20151125
  Serious: Yes (Hospitalization)
  Sender: FDA-Public Use
  Company Number: GB-AMGEN-GBRCT2014093922

PATIENT
  Age: 43 Year
  Sex: Male

DRUGS (2)
  1. DENOSUMAB [Suspect]
     Active Substance: DENOSUMAB
     Indication: BONE GIANT CELL TUMOUR
     Dosage: 120 MG, Q4WK
     Route: 058
     Dates: start: 20111017, end: 20140407
  2. DIHYDROCODEINE [Concomitant]
     Active Substance: DIHYDROCODEINE
     Dosage: 60 MG, ONE DOSE
     Route: 048
     Dates: start: 20141121

REACTIONS (1)
  - Bone giant cell tumour [Recovered/Resolved]

NARRATIVE: CASE EVENT DATE: 20141121
